FAERS Safety Report 9379196 (Version 2)
Quarter: 2013Q4

REPORT INFORMATION
  Report Type: Spontaneous
  Country: US (occurrence: US)
  Receive Date: 20130702
  Receipt Date: 20131022
  Transmission Date: 20140711
  Serious: Yes (Hospitalization)
  Sender: FDA-Public Use
  Company Number: US-ASTELLAS-2013US006747

PATIENT
  Age: 10 Year
  Sex: Female

DRUGS (1)
  1. PROGRAF [Suspect]
     Indication: LIVER TRANSPLANT
     Dosage: 2 MG AM, 1MG PM
     Route: 048
     Dates: start: 20031008

REACTIONS (4)
  - Hospitalisation [Unknown]
  - Gastric disorder [Unknown]
  - Nausea [Unknown]
  - Pain [Unknown]
